FAERS Safety Report 13278918 (Version 1)
Quarter: 2017Q1

REPORT INFORMATION
  Report Type: Spontaneous
  Country: US (occurrence: US)
  Receive Date: 20170228
  Receipt Date: 20170228
  Transmission Date: 20170428
  Serious: No
  Sender: FDA-Public Use
  Company Number: US-IMPAX LABORATORIES, INC-2016-IPXL-00762

PATIENT
  Age: 67 Year
  Sex: Female
  Weight: 59 kg

DRUGS (5)
  1. TRAMADOL. [Concomitant]
     Active Substance: TRAMADOL
     Indication: PAIN
     Dosage: 50 MG, 1 /DAY
     Route: 065
  2. LIPITOR [Concomitant]
     Active Substance: ATORVASTATIN CALCIUM
     Indication: BLOOD CHOLESTEROL INCREASED
     Dosage: 20 MG, 1 /DAY
     Route: 065
  3. EMVERM [Suspect]
     Active Substance: MEBENDAZOLE
     Indication: ENTEROBIASIS
     Dosage: UNK, 1 ONLY
     Route: 048
     Dates: start: 20160705
  4. CETIRIZINE [Concomitant]
     Active Substance: CETIRIZINE HYDROCHLORIDE
     Indication: HYPERSENSITIVITY
     Dosage: (10 MG), UNK
     Route: 065
  5. SERENACE [Concomitant]
     Active Substance: HALOPERIDOL
     Indication: HYPERSENSITIVITY
     Dosage: (50 ?G PER SPARY )
     Route: 065

REACTIONS (2)
  - Drug ineffective [Recovered/Resolved]
  - Contusion [Recovered/Resolved]

NARRATIVE: CASE EVENT DATE: 20160707
